FAERS Safety Report 23099517 (Version 5)
Quarter: 2023Q4

REPORT INFORMATION
  Report Type: Report from Study
  Country: TH (occurrence: TH)
  Receive Date: 20231024
  Receipt Date: 20231109
  Transmission Date: 20240109
  Serious: Yes (Hospitalization)
  Sender: FDA-Public Use
  Company Number: TH-Eisai Medical Research-EC-2023-147159

PATIENT
  Age: 72 Year
  Sex: Male
  Weight: 60.3 kg

DRUGS (17)
  1. LENVATINIB [Suspect]
     Active Substance: LENVATINIB
     Indication: Clear cell renal cell carcinoma
     Dosage: STARTING AT 20 MG (FLUCTUATED DOSAGE)
     Route: 048
     Dates: start: 20220511, end: 20230705
  2. LENVATINIB [Suspect]
     Active Substance: LENVATINIB
     Route: 048
     Dates: start: 20230706, end: 20230815
  3. QUAVONLIMAB [Suspect]
     Active Substance: QUAVONLIMAB
     Indication: Clear cell renal cell carcinoma
     Dosage: QUAVONLIMAB 25MG (+) PEMBROLIZUMAB 400MG (MK-1308A)
     Route: 042
     Dates: start: 20220511, end: 20230525
  4. PEMBROLIZUMAB [Suspect]
     Active Substance: PEMBROLIZUMAB
     Dosage: QUAVONLIMAB 25MG (+) PEMBROLIZUMAB 400MG (MK-1308A)
     Route: 042
     Dates: start: 20230706, end: 20230706
  5. DUOCETZ [Concomitant]
     Dates: start: 20220616
  6. SODIUM CHLORIDE [Concomitant]
     Active Substance: SODIUM CHLORIDE
     Dosage: RINSE
     Dates: start: 20220616
  7. SENOKOT [Concomitant]
     Active Substance: SENNOSIDES
     Dates: start: 20220623
  8. NATEAR [Concomitant]
     Dates: start: 20220702
  9. LOSARTAN [Concomitant]
     Active Substance: LOSARTAN
     Dates: start: 20221006, end: 20230907
  10. FERROUS FUMARATE [Concomitant]
     Active Substance: FERROUS FUMARATE
     Dates: start: 20221027
  11. HYDRALAZINE [Concomitant]
     Active Substance: HYDRALAZINE HYDROCHLORIDE
     Dates: start: 20230411, end: 20230818
  12. GLIPIZIDE [Concomitant]
     Active Substance: GLIPIZIDE
     Dates: start: 20230525, end: 20230614
  13. MANIDIPINE HYDROCHLORIDE [Concomitant]
     Active Substance: MANIDIPINE HYDROCHLORIDE
     Dates: start: 202012
  14. LORATADINE [Concomitant]
     Active Substance: LORATADINE
     Dates: start: 20220526
  15. METOCLOPRAMIDE [Concomitant]
     Active Substance: METOCLOPRAMIDE
     Dates: start: 20220511
  16. UREA [Concomitant]
     Active Substance: UREA
     Dates: start: 20220524
  17. TRIAMCINOLONE [Concomitant]
     Active Substance: TRIAMCINOLONE
     Dates: start: 20220526

REACTIONS (2)
  - Hyponatraemia [Recovered/Resolved]
  - Adrenal insufficiency [Recovered/Resolved]

NARRATIVE: CASE EVENT DATE: 20230615
